FAERS Safety Report 8334561-7 (Version None)
Quarter: 2012Q2

REPORT INFORMATION
  Report Type: 
  Country: None (occurrence: None)
  Receive Date: 20120503
  Receipt Date: 20120419
  Transmission Date: 20120825
  Serious: No
  Sender: FDA-Public Use
  Company Number: US-ENDO PHARMACEUTICALS INC.-OPIR20120049

PATIENT
  Sex: Female

DRUGS (1)
  1. OPANA [Suspect]
     Indication: ABDOMINAL PAIN
     Route: 048
     Dates: end: 20110101

REACTIONS (1)
  - DRUG INEFFECTIVE [None]
